FAERS Safety Report 6013871-2 (Version None)
Quarter: 2008Q4

REPORT INFORMATION
  Report Type: 
  Country: None (occurrence: None)
  Receive Date: 20081219
  Receipt Date: 20081212
  Transmission Date: 20090506
  Serious: Yes (Hospitalization)
  Sender: FDA-Public Use
  Company Number: JP-ELI_LILLY_AND_COMPANY-JP200811003145

PATIENT
  Weight: 3.284 kg

DRUGS (3)
  1. HUMALOG [Suspect]
     Route: 064
     Dates: start: 20070620, end: 20080327
  2. HUMALOG [Suspect]
     Route: 063
     Dates: start: 20080328
  3. LANTUS [Concomitant]
     Route: 064
     Dates: start: 20070620, end: 20080327

REACTIONS (5)
  - DRUG EXPOSURE DURING PREGNANCY [None]
  - DRUG EXPOSURE VIA BREAST MILK [None]
  - HYPOGLYCAEMIA NEONATAL [None]
  - JAUNDICE NEONATAL [None]
  - POLYCYTHAEMIA [None]
